FAERS Safety Report 21540293 (Version 3)
Quarter: 2022Q4

REPORT INFORMATION
  Report Type: Other
  Country: CA (occurrence: None)
  Receive Date: 20221102
  Receipt Date: 20221123
  Transmission Date: 20230113
  Serious: Yes (Death, Hospitalization, Other)
  Sender: FDA-Public Use
  Company Number: CA-ROCHE-3205585

PATIENT
  Age: 57 Year
  Sex: Male

DRUGS (3)
  1. OCREVUS [Suspect]
     Active Substance: OCRELIZUMAB
     Indication: Relapsing-remitting multiple sclerosis
     Dosage: 300 MG AT DAY 0 AND 14, THEN 600 MG EVERY 6 MONTH
     Route: 042
     Dates: start: 20220519
  2. BETASERON [Suspect]
     Active Substance: INTERFERON BETA-1B
     Indication: Product used for unknown indication
     Route: 065
  3. LYRICA [Concomitant]
     Active Substance: PREGABALIN

REACTIONS (8)
  - Pneumonia [Unknown]
  - Respiratory distress [Unknown]
  - Heart rate increased [Unknown]
  - Depression [Unknown]
  - Therapy non-responder [Unknown]
  - Neurogenic bladder [Unknown]
  - Urinary retention [Unknown]
  - Death [Fatal]

NARRATIVE: CASE EVENT DATE: 20221102
